FAERS Safety Report 5695171-3 (Version None)
Quarter: 2008Q2

REPORT INFORMATION
  Report Type: 
  Country: None (occurrence: None)
  Receive Date: 20080404
  Receipt Date: 20080325
  Transmission Date: 20081010
  Serious: Yes (Hospitalization)
  Sender: FDA-Public Use
  Company Number: FR-PFIZER INC-2008027320

PATIENT
  Sex: Female

DRUGS (7)
  1. ALDACTONE [Suspect]
  2. COVERSYL [Suspect]
  3. LASILIX [Suspect]
  4. DRUG, UNSPECIFIED [Concomitant]
  5. DRUG, UNSPECIFIED [Concomitant]
  6. NSAID'S [Concomitant]
  7. ANTICOAGULANTS [Concomitant]

REACTIONS (3)
  - HYPERKALAEMIA [None]
  - HYPOTENSION [None]
  - RENAL FAILURE ACUTE [None]
